FAERS Safety Report 6805804-3 (Version None)
Quarter: 2010Q2

REPORT INFORMATION
  Report Type: 
  Country: None (occurrence: None)
  Receive Date: 20100629
  Receipt Date: 20080807
  Transmission Date: 20101027
  Serious: Yes (Hospitalization, Other)
  Sender: FDA-Public Use
  Company Number: US-PFIZER INC-2005060719

PATIENT
  Sex: Male
  Weight: 95.3 kg

DRUGS (7)
  1. BEXTRA [Suspect]
     Indication: ARTHRITIS
  2. ADVIL LIQUI-GELS [Concomitant]
  3. ALEVE (CAPLET) [Concomitant]
  4. MOBIC [Concomitant]
  5. PERCOCET [Concomitant]
  6. TYLENOL [Concomitant]
  7. VIOXX [Concomitant]

REACTIONS (2)
  - EPISTAXIS [None]
  - MYOCARDIAL INFARCTION [None]
